FAERS Safety Report 6768786-9 (Version None)
Quarter: 2010Q2

REPORT INFORMATION
  Report Type: 
  Country: None (occurrence: None)
  Receive Date: 20100611
  Receipt Date: 20100602
  Transmission Date: 20101027
  Serious: Yes (Other)
  Sender: FDA-Public Use
  Company Number: A0863372A

PATIENT
  Sex: Male

DRUGS (1)
  1. CAFFEINE (FOMULATION UNKNOWN) (CAFFEINE) [Suspect]
     Dosage: ORAL
     Route: 048

REACTIONS (1)
  - RECTAL HAEMORRHAGE [None]
